FAERS Safety Report 25561323 (Version 3)
Quarter: 2025Q3

REPORT INFORMATION
  Report Type: Spontaneous
  Country: EU (occurrence: EU)
  Receive Date: 20250716
  Receipt Date: 20250730
  Transmission Date: 20251021
  Serious: Yes (Other)
  Sender: BAUSCH AND LOMB
  Company Number: EU-BAUSCH-BH-2025-014840

PATIENT
  Age: 49 Year
  Sex: Female

DRUGS (2)
  1. RIFAXIMIN [Suspect]
     Active Substance: RIFAXIMIN
     Indication: Abdominal distension
     Dosage: 400 MG 1 TABLET EVERY 12H FOR 10 DAYS
     Route: 048
  2. RIFAXIMIN [Suspect]
     Active Substance: RIFAXIMIN
     Indication: Off label use

REACTIONS (6)
  - Clostridium difficile infection [Unknown]
  - Off label use [Unknown]
  - Illness [Unknown]
  - Weight decreased [Unknown]
  - Diarrhoea [Unknown]
  - Vomiting [Unknown]

NARRATIVE: CASE EVENT DATE: 20250501
